FAERS Safety Report 26107555 (Version 1)
Quarter: 2025Q4

REPORT INFORMATION
  Report Type: Spontaneous
  Country: EU (occurrence: EU)
  Receive Date: 20251201
  Receipt Date: 20251201
  Transmission Date: 20260117
  Serious: Yes (Hospitalization, Other)
  Sender: BAYER HEALTHCARE PHARMACEUTICALS INC.
  Company Number: EU-BAYER-2025A141975

PATIENT
  Age: 40 Year
  Sex: Female
  Weight: 52 kg

DRUGS (2)
  1. GADOBUTROL [Suspect]
     Active Substance: GADOBUTROL
     Indication: Breast scan
     Dosage: 5 ML, ONCE
     Route: 042
     Dates: start: 20251017, end: 20251017
  2. GADOBUTROL [Suspect]
     Active Substance: GADOBUTROL
     Indication: Magnetic resonance imaging

REACTIONS (6)
  - Anaphylactic shock [None]
  - Cough [None]
  - Face oedema [None]
  - Discomfort [None]
  - Suffocation feeling [None]
  - Blood pressure abnormal [None]
